FAERS Safety Report 9375093 (Version 1)
Quarter: 2013Q2

REPORT INFORMATION
  Report Type: Spontaneous
  Country: US (occurrence: US)
  Receive Date: 20130628
  Receipt Date: 20130628
  Transmission Date: 20140414
  Serious: No
  Sender: FDA-Public Use
  Company Number: US-PFIZER INC-2013190545

PATIENT
  Sex: Female
  Weight: 90.7 kg

DRUGS (1)
  1. LEVOXYL [Suspect]
     Dosage: UNK

REACTIONS (4)
  - Dehydration [Recovered/Resolved]
  - Drug hypersensitivity [Recovered/Resolved]
  - Diarrhoea [Recovered/Resolved]
  - Hyperhidrosis [Recovered/Resolved]
